FAERS Safety Report 17473754 (Version 1)
Quarter: 2020Q1

REPORT INFORMATION
  Report Type: Spontaneous
  Country: US (occurrence: US)
  Receive Date: 20191010
  Receipt Date: 20191010
  Transmission Date: 20200409
  Serious: Yes (Life-Threatening, Hospitalization)
  Sender: FDA-Public Use
  Company Number: None

PATIENT
  Age: 51 Year
  Sex: Female

DRUGS (5)
  1. ANTI-REJECTION MEDICATION [Concomitant]
     Active Substance: UNSPECIFIED INGREDIENT
  2. ZOLFOT [Concomitant]
  3. THC VAPE [Suspect]
     Active Substance: .DELTA.8-TETRAHYDROCANNABINOL\DEVICE\HERBALS
  4. GUMMIES FOR HAIR/NAILS [Concomitant]
     Dates: start: 201908
  5. MARIJUANA VAPE [Suspect]
     Active Substance: CANNABIS SATIVA SUBSP. INDICA TOP\DEVICE

REACTIONS (9)
  - Fatigue [None]
  - Confusional state [None]
  - Dyspnoea [None]
  - Feeling abnormal [None]
  - Coma [None]
  - Headache [None]
  - Hyperhidrosis [None]
  - Cough [None]
  - Pyrexia [None]
